FAERS Safety Report 8870596 (Version 1)
Quarter: 2012Q4

REPORT INFORMATION
  Report Type: 
  Country: US (occurrence: US)
  Receive Date: 20121023
  Receipt Date: 20121023
  Transmission Date: 20130627
  Serious: Yes (Hospitalization)
  Sender: FDA-Public Use
  Company Number: US-AMGEN-USASP2012012087

PATIENT
  Age: 56 Year
  Sex: Female

DRUGS (3)
  1. ENBREL [Suspect]
     Indication: RHEUMATOID ARTHRITIS
     Dosage: 50 mg, qwk
     Route: 058
     Dates: start: 200703
  2. ENBREL [Suspect]
  3. TREXALL [Concomitant]
     Dosage: 1 mg, qwk
     Dates: start: 2005

REACTIONS (1)
  - Pneumonia bacterial [Recovered/Resolved]
